FAERS Safety Report 21335759 (Version 3)
Quarter: 2022Q4

REPORT INFORMATION
  Report Type: Spontaneous
  Country: US (occurrence: US)
  Receive Date: 20220915
  Receipt Date: 20221029
  Transmission Date: 20230113
  Serious: No
  Sender: FDA-Public Use
  Company Number: US-UNITED THERAPEUTICS-UNT-2022-021019

PATIENT
  Sex: Female
  Weight: 97.687 kg

DRUGS (5)
  1. REMODULIN [Suspect]
     Active Substance: TREPROSTINIL
     Indication: Pulmonary arterial hypertension
     Dosage: UNK, CONTINUING
     Route: 058
     Dates: start: 20220831
  2. REMODULIN [Suspect]
     Active Substance: TREPROSTINIL
     Dosage: 0.024 ?G/KG, CONTINUING [PREFILLED WITH 2.6ML PER CASSETTE; PUMP RATE 29MCL/ HOUR]
     Route: 058
     Dates: start: 2022
  3. REMODULIN [Suspect]
     Active Substance: TREPROSTINIL
     Indication: Pulmonary arterial hypertension
     Dosage: UNK, CONTINUING
     Route: 058
     Dates: start: 20220831
  4. REMODULIN [Suspect]
     Active Substance: TREPROSTINIL
     Dosage: 0.024 ?G/KG, CONTINUING [PREFILLED WITH 2.6ML PER CASSETTE; PUMP RATE 29MCL/ HOUR]
     Route: 058
     Dates: start: 2022
  5. SILDENAFIL CITRATE [Concomitant]
     Active Substance: SILDENAFIL CITRATE
     Indication: Product used for unknown indication
     Dosage: UNK
     Route: 065

REACTIONS (8)
  - Device dislocation [Unknown]
  - Device placement issue [Unknown]
  - Infusion site erythema [Recovering/Resolving]
  - Infusion site haemorrhage [Unknown]
  - Infusion site swelling [Unknown]
  - Infusion site pain [Recovering/Resolving]
  - Device infusion issue [Unknown]
  - Infusion site reaction [Unknown]

NARRATIVE: CASE EVENT DATE: 20220101
